FAERS Safety Report 23951670 (Version 1)
Quarter: 2024Q2

REPORT INFORMATION
  Report Type: Spontaneous
  Country: US (occurrence: None)
  Receive Date: 20240607
  Receipt Date: 20240607
  Transmission Date: 20240716
  Serious: No
  Sender: FDA-Public Use
  Company Number: None

PATIENT
  Age: 56 Year
  Sex: Female
  Weight: 63.45 kg

DRUGS (12)
  1. ROSUVASTATIN [Suspect]
     Active Substance: ROSUVASTATIN
     Indication: Transient ischaemic attack
  2. ROSUVASTATIN [Suspect]
     Active Substance: ROSUVASTATIN
  3. LIPITOR [Suspect]
     Active Substance: ATORVASTATIN CALCIUM
  4. FISH OIL [Concomitant]
     Active Substance: FISH OIL
  5. VITAMINS [Concomitant]
     Active Substance: VITAMINS
  6. vit c and d [Concomitant]
  7. GARLIC [Concomitant]
     Active Substance: GARLIC
  8. HERBALS\TURMERIC [Concomitant]
     Active Substance: HERBALS\TURMERIC
  9. beets [Concomitant]
  10. ZINC [Concomitant]
     Active Substance: PYRITHIONE ZINC\ZINC\ZINC CHLORIDE
  11. citrus bergamont [Concomitant]
  12. FAMOTIDINE [Concomitant]
     Active Substance: FAMOTIDINE

REACTIONS (11)
  - Dizziness [None]
  - Head discomfort [None]
  - Vision blurred [None]
  - Ocular hyperaemia [None]
  - Pain [None]
  - Asthenia [None]
  - Blood glucose increased [None]
  - Pollakiuria [None]
  - Cough [None]
  - Oropharyngeal pain [None]
  - Nausea [None]

NARRATIVE: CASE EVENT DATE: 20240327
